FAERS Safety Report 25543018 (Version 1)
Quarter: 2025Q3

REPORT INFORMATION
  Report Type: Spontaneous
  Country: US (occurrence: US)
  Receive Date: 20250711
  Receipt Date: 20250711
  Transmission Date: 20251021
  Serious: Yes (Other)
  Sender: MYLAN
  Company Number: US-MYLANLABS-2025M1056384

PATIENT
  Age: 39 Year
  Sex: Female

DRUGS (32)
  1. METHOTREXATE [Suspect]
     Active Substance: METHOTREXATE
     Indication: Precursor T-lymphoblastic leukaemia acute
  2. METHOTREXATE [Suspect]
     Active Substance: METHOTREXATE
     Route: 037
  3. METHOTREXATE [Suspect]
     Active Substance: METHOTREXATE
     Route: 037
  4. METHOTREXATE [Suspect]
     Active Substance: METHOTREXATE
  5. NELARABINE [Suspect]
     Active Substance: NELARABINE
     Indication: Precursor T-lymphoblastic leukaemia acute
  6. NELARABINE [Suspect]
     Active Substance: NELARABINE
     Route: 065
  7. NELARABINE [Suspect]
     Active Substance: NELARABINE
     Route: 065
  8. NELARABINE [Suspect]
     Active Substance: NELARABINE
  9. VINCRISTINE [Suspect]
     Active Substance: VINCRISTINE
     Indication: Precursor T-lymphoblastic leukaemia acute
  10. VINCRISTINE [Suspect]
     Active Substance: VINCRISTINE
     Route: 065
  11. VINCRISTINE [Suspect]
     Active Substance: VINCRISTINE
     Route: 065
  12. VINCRISTINE [Suspect]
     Active Substance: VINCRISTINE
  13. CYCLOPHOSPHAMIDE [Concomitant]
     Active Substance: CYCLOPHOSPHAMIDE
     Indication: Precursor T-lymphoblastic leukaemia acute
  14. CYCLOPHOSPHAMIDE [Concomitant]
     Active Substance: CYCLOPHOSPHAMIDE
     Route: 065
  15. CYCLOPHOSPHAMIDE [Concomitant]
     Active Substance: CYCLOPHOSPHAMIDE
     Route: 065
  16. CYCLOPHOSPHAMIDE [Concomitant]
     Active Substance: CYCLOPHOSPHAMIDE
  17. DOXORUBICIN [Concomitant]
     Active Substance: DOXORUBICIN
     Indication: Precursor T-lymphoblastic leukaemia acute
  18. DOXORUBICIN [Concomitant]
     Active Substance: DOXORUBICIN
     Route: 065
  19. DOXORUBICIN [Concomitant]
     Active Substance: DOXORUBICIN
     Route: 065
  20. DOXORUBICIN [Concomitant]
     Active Substance: DOXORUBICIN
  21. DEXAMETHASONE [Concomitant]
     Active Substance: DEXAMETHASONE
     Indication: Precursor T-lymphoblastic leukaemia acute
  22. DEXAMETHASONE [Concomitant]
     Active Substance: DEXAMETHASONE
     Route: 065
  23. DEXAMETHASONE [Concomitant]
     Active Substance: DEXAMETHASONE
     Route: 065
  24. DEXAMETHASONE [Concomitant]
     Active Substance: DEXAMETHASONE
  25. PEGASPARGASE [Concomitant]
     Active Substance: PEGASPARGASE
     Indication: Precursor T-lymphoblastic leukaemia acute
  26. PEGASPARGASE [Concomitant]
     Active Substance: PEGASPARGASE
     Route: 065
  27. PEGASPARGASE [Concomitant]
     Active Substance: PEGASPARGASE
     Route: 065
  28. PEGASPARGASE [Concomitant]
     Active Substance: PEGASPARGASE
  29. VENETOCLAX [Concomitant]
     Active Substance: VENETOCLAX
     Indication: Precursor T-lymphoblastic leukaemia acute
  30. VENETOCLAX [Concomitant]
     Active Substance: VENETOCLAX
     Route: 065
  31. VENETOCLAX [Concomitant]
     Active Substance: VENETOCLAX
     Route: 065
  32. VENETOCLAX [Concomitant]
     Active Substance: VENETOCLAX

REACTIONS (2)
  - Neurotoxicity [Recovering/Resolving]
  - Myelopathy [Recovering/Resolving]
